FAERS Safety Report 18397496 (Version 1)
Quarter: 2020Q4

REPORT INFORMATION
  Report Type: Report from Study
  Country: US (occurrence: US)
  Receive Date: 20201019
  Receipt Date: 20201019
  Transmission Date: 20210114
  Serious: Yes (Death)
  Sender: FDA-Public Use
  Company Number: US-PFIZER INC-2020398644

PATIENT
  Sex: Female

DRUGS (3)
  1. MEGESTROL ACETATE. [Suspect]
     Active Substance: MEGESTROL ACETATE
     Indication: ENDOMETRIAL CANCER
     Dosage: 80 MG, 2X/DAY (FOR 3 WEEKS)
     Route: 048
  2. TAMOXIFEN [Suspect]
     Active Substance: TAMOXIFEN
     Indication: ENDOMETRIAL CANCER
     Dosage: 20 MG, 2X/DAY (FOR 3 WEEK)
     Route: 048
  3. TEMSIROLIMUS. [Suspect]
     Active Substance: TEMSIROLIMUS
     Indication: ENDOMETRIAL CANCER
     Dosage: 25 MG, WEEKLY
     Route: 042

REACTIONS (1)
  - Sudden death [Fatal]
